FAERS Safety Report 18391706 (Version 1)
Quarter: 2020Q4

REPORT INFORMATION
  Report Type: Spontaneous
  Country: US (occurrence: US)
  Receive Date: 20201016
  Receipt Date: 20201016
  Transmission Date: 20210114
  Serious: Yes (Other)
  Sender: FDA-Public Use
  Company Number: None

PATIENT
  Age: 31 Year
  Sex: Female
  Weight: 56.25 kg

DRUGS (1)
  1. BIOFREEZE ROLL-ON [Suspect]
     Active Substance: MENTHOL
     Indication: BACK PAIN
     Dosage: ?          OTHER STRENGTH:NO SURE;QUANTITY:2 ROLL ON;OTHER FREQUENCY:USED ONCE;?
     Route: 062
     Dates: start: 20201001, end: 20201001

REACTIONS (2)
  - Skin discolouration [None]
  - Skin burning sensation [None]

NARRATIVE: CASE EVENT DATE: 20201001
